FAERS Safety Report 9406335 (Version 3)
Quarter: 2013Q3

REPORT INFORMATION
  Report Type: Spontaneous
  Country: JP (occurrence: JP)
  Receive Date: 20130717
  Receipt Date: 20130807
  Transmission Date: 20140515
  Serious: Yes (Hospitalization, Other)
  Sender: FDA-Public Use
  Company Number: JP-PFIZER INC-2013204500

PATIENT
  Age: 34 Year
  Sex: Female
  Weight: 56 kg

DRUGS (5)
  1. SALAZOPYRIN [Suspect]
     Indication: COLITIS
     Dosage: 1000 MG, 2X/DAY
     Route: 048
     Dates: start: 20111109, end: 20111206
  2. BIOFERMIN [Concomitant]
     Indication: COLITIS
     Dosage: 1 DF, 3X/DAY
     Route: 048
     Dates: start: 20111109
  3. MUCOSTA [Concomitant]
     Indication: GASTRITIS
     Dosage: 100 MG, 3X/DAY
     Route: 048
     Dates: start: 20111207, end: 20111213
  4. ISODINE [Concomitant]
     Indication: STOMATITIS
     Dosage: UNK
     Route: 049
     Dates: start: 20111207, end: 20111213
  5. KENALOG [Concomitant]
     Indication: STOMATITIS
     Dosage: UNK
     Route: 061
     Dates: start: 20111207, end: 20111213

REACTIONS (3)
  - Drug reaction with eosinophilia and systemic symptoms [Recovering/Resolving]
  - Hepatic function abnormal [Recovered/Resolved]
  - Diabetes mellitus [Not Recovered/Not Resolved]
